FAERS Safety Report 5233850-2 (Version None)
Quarter: 2007Q1

REPORT INFORMATION
  Report Type: 
  Country: None (occurrence: None)
  Receive Date: 20070208
  Receipt Date: 20070129
  Transmission Date: 20070707
  Serious: Yes (Hospitalization)
  Sender: FDA-Public Use
  Company Number: GB-BAXTER-2006BH014193

PATIENT
  Age: 55 Year
  Sex: Female

DRUGS (2)
  1. SODIUM CHLORIDE 0.9% IN PLASTIC CONTAINER [Suspect]
     Indication: CARDIAC DISORDER
     Route: 042
     Dates: start: 20061024, end: 20061024
  2. PLASMA SUBSTITUTES AND PERFUSION SOLUTIONS [Suspect]
     Indication: DRUG USE FOR UNKNOWN INDICATION
     Route: 065

REACTIONS (11)
  - BACK PAIN [None]
  - BLOOD PRESSURE DECREASED [None]
  - BLOOD PRESSURE IMMEASURABLE [None]
  - BODY TEMPERATURE [None]
  - CHILLS [None]
  - CIRCULATORY COLLAPSE [None]
  - COLD SWEAT [None]
  - DYSPNOEA [None]
  - HYPERHIDROSIS [None]
  - OXYGEN SATURATION DECREASED [None]
  - PALLOR [None]
